FAERS Safety Report 22330734 (Version 1)
Quarter: 2023Q2

REPORT INFORMATION
  Report Type: Spontaneous
  Country: IT (occurrence: IT)
  Receive Date: 20230517
  Receipt Date: 20230517
  Transmission Date: 20230721
  Serious: Yes (Hospitalization, Other)
  Sender: FDA-Public Use
  Company Number: IT-MINISAL02-922962

PATIENT
  Age: 63 Year
  Sex: Male
  Weight: 120 kg

DRUGS (1)
  1. PIOGLITAZONE [Suspect]
     Active Substance: PIOGLITAZONE
     Indication: Type 2 diabetes mellitus
     Dosage: 30 MILLIGRAM, ONCE A DAY, 1 TABLET OF 30 MG EVERY DAY
     Route: 048
     Dates: start: 202209, end: 20230418

REACTIONS (3)
  - Cardiac failure [Recovered/Resolved]
  - Weight increased [Recovered/Resolved]
  - Oedema peripheral [Recovered/Resolved]

NARRATIVE: CASE EVENT DATE: 20230330
